FAERS Safety Report 8208771-3 (Version None)
Quarter: 2012Q1

REPORT INFORMATION
  Report Type: 
  Country: None (occurrence: None)
  Receive Date: 20120314
  Receipt Date: 20120306
  Transmission Date: 20120608
  Serious: Yes (Hospitalization)
  Sender: FDA-Public Use
  Company Number: US-BAYER-2012-023057

PATIENT
  Age: 20 Year
  Sex: Female

DRUGS (6)
  1. MOTRIN [Concomitant]
     Indication: MONONUCLEOSIS SYNDROME
  2. YASMIN [Suspect]
  3. PREDNISONE TAB [Concomitant]
     Dosage: 10 MG, QD
  4. PREDNISONE TAB [Concomitant]
     Indication: MONONUCLEOSIS SYNDROME
     Dosage: 20 MG, QD
  5. DIAMOX SRC [Concomitant]
  6. TYLENOL [Concomitant]

REACTIONS (3)
  - SUBARACHNOID HAEMORRHAGE [None]
  - CEREBRAL HAEMORRHAGE [None]
  - SUPERIOR SAGITTAL SINUS THROMBOSIS [None]
